FAERS Safety Report 9170482 (Version 1)
Quarter: 2013Q1

REPORT INFORMATION
  Report Type: Report from Study
  Country: AU (occurrence: AU)
  Receive Date: 20130319
  Receipt Date: 20130319
  Transmission Date: 20140127
  Serious: Yes (Hospitalization)
  Sender: FDA-Public Use
  Company Number: AU-JNJFOC-20130307095

PATIENT
  Sex: Female

DRUGS (11)
  1. STELARA [Suspect]
     Indication: PSORIASIS
     Route: 058
     Dates: start: 20121130
  2. STELARA [Suspect]
     Indication: PSORIASIS
     Route: 058
     Dates: start: 20120905
  3. STELARA [Suspect]
     Indication: PSORIASIS
     Route: 058
     Dates: start: 20120614
  4. STELARA [Suspect]
     Indication: PSORIASIS
     Route: 058
     Dates: start: 20120322
  5. STELARA [Suspect]
     Indication: PSORIASIS
     Route: 058
     Dates: start: 20120223
  6. VERAPAMIL [Concomitant]
  7. PARIET [Concomitant]
  8. ASPIRIN [Concomitant]
  9. LASIX [Concomitant]
  10. SLOW K [Concomitant]
  11. ZOCOR [Concomitant]

REACTIONS (1)
  - Pneumonia [Recovering/Resolving]
